FAERS Safety Report 7587406-7 (Version None)
Quarter: 2011Q3

REPORT INFORMATION
  Report Type: 
  Country: None (occurrence: None)
  Receive Date: 20110704
  Receipt Date: 20110622
  Transmission Date: 20111222
  Serious: Yes (Hospitalization)
  Sender: FDA-Public Use
  Company Number: FR-BRISTOL-MYERS SQUIBB COMPANY-15863889

PATIENT
  Age: 59 Year
  Sex: Male

DRUGS (8)
  1. GLUCOPHAGE [Suspect]
     Dosage: FORMULATION : 1G,TOTAL DOSE 3G, 3 DF,3 IN 1 DAY
     Route: 048
     Dates: end: 20101103
  2. DIAMICRON [Suspect]
     Dosage: 4 DF,1 IN 1 DAY,FORMULATION :30MG TAB
     Route: 048
     Dates: end: 20101103
  3. CRESTOR [Concomitant]
     Dosage: TAB
     Route: 048
  4. AMLODIPINE [Concomitant]
     Dosage: CAP
     Route: 048
  5. PRETERAX [Concomitant]
     Dosage: 2MG TAB
     Route: 048
  6. GLIMEPIRIDE [Concomitant]
     Route: 048
     Dates: end: 20101026
  7. NOVOMIX [Concomitant]
  8. BYETTA [Suspect]
     Dosage: FORMULATION: 5MCG,ROUTE: PREFILLED PEN,1 DF;2 IN 1D
     Dates: start: 20101028, end: 20101106

REACTIONS (2)
  - PANCREATITIS ACUTE [None]
  - HEPATIC ENZYME INCREASED [None]
